FAERS Safety Report 23998523 (Version 4)
Quarter: 2025Q1

REPORT INFORMATION
  Report Type: Report from Study
  Country: PL (occurrence: PL)
  Receive Date: 20240621
  Receipt Date: 20250327
  Transmission Date: 20250408
  Serious: Yes (Life-Threatening, Other)
  Sender: TAKEDA
  Company Number: PL-TAKEDA-2024TUS060539

PATIENT
  Age: 33 Year
  Sex: Female
  Weight: 59 kg

DRUGS (13)
  1. ADAMTS13, RECOMBINANT-KRHN [Suspect]
     Active Substance: ADAMTS13, RECOMBINANT-KRHN
     Indication: Thrombotic thrombocytopenic purpura
     Dosage: 2400 INTERNATIONAL UNIT, Q2WEEKS
     Dates: start: 20220211
  2. ADAMTS13, RECOMBINANT-KRHN [Suspect]
     Active Substance: ADAMTS13, RECOMBINANT-KRHN
     Dosage: 2400 INTERNATIONAL UNIT, 1/WEEK
  3. ADAMTS13, RECOMBINANT-KRHN [Suspect]
     Active Substance: ADAMTS13, RECOMBINANT-KRHN
     Dosage: 2700 INTERNATIONAL UNIT, 1/WEEK
  4. ADAMTS13, RECOMBINANT-KRHN [Suspect]
     Active Substance: ADAMTS13, RECOMBINANT-KRHN
  5. ADAMTS13, RECOMBINANT-KRHN [Suspect]
     Active Substance: ADAMTS13, RECOMBINANT-KRHN
     Dosage: 3000 INTERNATIONAL UNIT, 1/WEEK
  6. ADAMTS13, RECOMBINANT-KRHN [Suspect]
     Active Substance: ADAMTS13, RECOMBINANT-KRHN
     Dosage: 2500 INTERNATIONAL UNIT, 1/WEEK
  7. ADAMTS13, RECOMBINANT-KRHN [Suspect]
     Active Substance: ADAMTS13, RECOMBINANT-KRHN
     Dosage: 2400 INTERNATIONAL UNIT, Q2WEEKS
  8. ADAMTS13, RECOMBINANT-KRHN [Suspect]
     Active Substance: ADAMTS13, RECOMBINANT-KRHN
     Dosage: 2500 INTERNATIONAL UNIT, Q2WEEKS
  9. EUTHYROX [Concomitant]
     Active Substance: LEVOTHYROXINE SODIUM
     Indication: Hypothyroidism
     Dosage: UNK UNK, QD
     Dates: start: 2016
  10. METHYLDOPA [Concomitant]
     Active Substance: METHYLDOPA
     Indication: Hypertension
     Dosage: UNK UNK, QD
     Dates: start: 2021
  11. ENOXAPARIN [Concomitant]
     Active Substance: ENOXAPARIN
     Dosage: 40 MILLIGRAM, QD
  12. ENOXAPARIN [Concomitant]
     Active Substance: ENOXAPARIN
     Dosage: 60 MILLIGRAM, QD
  13. ASPIRIN [Concomitant]
     Active Substance: ASPIRIN
     Dosage: UNK UNK, QD

REACTIONS (6)
  - Thrombotic thrombocytopenic purpura [Unknown]
  - Abortion spontaneous [Recovered/Resolved]
  - Weight increased [Unknown]
  - Blood lactate dehydrogenase increased [Unknown]
  - Haemoglobin decreased [Unknown]
  - Pregnancy [Recovered/Resolved]
